FAERS Safety Report 4836357-7 (Version None)
Quarter: 2005Q4

REPORT INFORMATION
  Report Type: 
  Country: None (occurrence: None)
  Receive Date: 20051123
  Receipt Date: 20050812
  Transmission Date: 20060501
  Serious: Yes (Other)
  Sender: FDA-Public Use
  Company Number: DE-ROCHE-413950

PATIENT
  Age: 41 Year
  Sex: Male
  Weight: 78 kg

DRUGS (4)
  1. PEGASYS [Suspect]
     Indication: HEPATITIS C
     Route: 058
     Dates: start: 20050412
  2. PEGASYS [Suspect]
     Route: 058
     Dates: end: 20050928
  3. COPEGUS [Suspect]
     Indication: HEPATITIS C
     Route: 048
     Dates: start: 20050412
  4. COPEGUS [Suspect]
     Route: 048
     Dates: end: 20050928

REACTIONS (2)
  - HAEMOLYSIS [None]
  - HEPATITIS TOXIC [None]
